FAERS Safety Report 8871583 (Version 1)
Quarter: 2012Q4

REPORT INFORMATION
  Report Type: 
  Country: GB (occurrence: GB)
  Receive Date: 20121029
  Receipt Date: 20121029
  Transmission Date: 20130627
  Serious: Yes (Life-Threatening, Other)
  Sender: FDA-Public Use
  Company Number: GB-B.I. PHARMACEUTICALS,INC./RIDGEFIELD-2012-UK-01558UK

PATIENT
  Age: 86 Year
  Sex: Female
  Weight: 79 kg

DRUGS (7)
  1. DABIGATRAN [Suspect]
     Dosage: 220 mg
     Route: 048
     Dates: start: 20121008, end: 20121010
  2. ALLOPURINOL [Concomitant]
  3. AMIODARONE [Concomitant]
  4. BISOPROLOL [Concomitant]
  5. FUROSEMIDE [Concomitant]
  6. SIMVASTATIN [Concomitant]
  7. WARFARIN [Concomitant]

REACTIONS (4)
  - Gastrointestinal haemorrhage [Not Recovered/Not Resolved]
  - Duodenitis [Unknown]
  - Oesophagitis [Unknown]
  - Gastritis [Unknown]
